FAERS Safety Report 8596060 (Version 4)
Quarter: 2015Q1

REPORT INFORMATION
  Report Type: Spontaneous
  Country: US (occurrence: US)
  Receive Date: 20120605
  Receipt Date: 20150330
  Transmission Date: 20150721
  Serious: No
  Sender: FDA-Public Use
  Company Number: US-ASTRAZENECA-2012SE35641

PATIENT
  Age: 55 Year
  Sex: Male
  Weight: 88.5 kg

DRUGS (30)
  1. RANITIDINE [Concomitant]
     Active Substance: RANITIDINE\RANITIDINE HYDROCHLORIDE
     Dates: start: 20110329
  2. NEXIUM [Suspect]
     Active Substance: ESOMEPRAZOLE MAGNESIUM
     Indication: GASTROOESOPHAGEAL REFLUX DISEASE
     Route: 048
     Dates: start: 20110228
  3. SINGULAIR [Concomitant]
     Active Substance: MONTELUKAST SODIUM
     Dates: start: 20110428
  4. CITALOPRAM [Concomitant]
     Active Substance: CITALOPRAM HYDROBROMIDE
     Dates: start: 20110523
  5. TOPIRAMATE. [Concomitant]
     Active Substance: TOPIRAMATE
     Dates: start: 20071210
  6. TRAMADOL [Concomitant]
     Active Substance: TRAMADOL
     Dates: start: 20120201
  7. ALKASELTZER [Concomitant]
  8. BUSPIRONE [Concomitant]
     Active Substance: BUSPIRONE HYDROCHLORIDE
     Dates: start: 20081123
  9. REQUIP/  ROPINIROLE [Concomitant]
     Dates: start: 2007
  10. PRISTIQ EXTENDED RELEASE [Concomitant]
     Active Substance: DESVENLAFAXINE SUCCINATE
     Dates: start: 20110428
  11. SINGULAIR [Concomitant]
     Active Substance: MONTELUKAST SODIUM
     Route: 048
     Dates: start: 20071103
  12. MELOXICAM. [Concomitant]
     Active Substance: MELOXICAM
     Dates: start: 20110523
  13. TRAZODONE [Concomitant]
     Active Substance: TRAZODONE HYDROCHLORIDE
     Dates: start: 20110523
  14. DIAZEPAM. [Concomitant]
     Active Substance: DIAZEPAM
     Route: 048
     Dates: start: 20110725
  15. NEXIUM [Suspect]
     Active Substance: ESOMEPRAZOLE MAGNESIUM
     Indication: GASTROOESOPHAGEAL REFLUX DISEASE
     Dosage: ONCE A DAY
     Route: 048
  16. PREDNISONE. [Concomitant]
     Active Substance: PREDNISONE
     Dates: start: 20110523
  17. TOPIRAMATE. [Concomitant]
     Active Substance: TOPIRAMATE
     Dates: start: 20120201
  18. IBUPROFEN IPI [Concomitant]
     Dates: start: 20110725
  19. NEXIUM [Suspect]
     Active Substance: ESOMEPRAZOLE MAGNESIUM
     Indication: GASTROOESOPHAGEAL REFLUX DISEASE
     Route: 048
     Dates: start: 20070604
  20. LEXAPRO [Concomitant]
     Active Substance: ESCITALOPRAM OXALATE
     Dates: start: 20070912
  21. CLONAZEPAM. [Concomitant]
     Active Substance: CLONAZEPAM
     Route: 048
     Dates: start: 20120411
  22. TUMS [Concomitant]
     Active Substance: CALCIUM CARBONATE
  23. SEROQUEL [Concomitant]
     Active Substance: QUETIAPINE FUMARATE
     Dates: start: 20071203
  24. NEXIUM [Suspect]
     Active Substance: ESOMEPRAZOLE MAGNESIUM
     Indication: GASTROOESOPHAGEAL REFLUX DISEASE
     Route: 048
     Dates: start: 20110523
  25. PRILOSEC [Concomitant]
     Active Substance: OMEPRAZOLE MAGNESIUM
  26. REQUIP/  ROPINIROLE [Concomitant]
     Dates: start: 20110207
  27. HYDROCODO/APAP [Concomitant]
     Dosage: 5-500
     Dates: start: 20110725
  28. DEXILANT DR [Concomitant]
     Dates: start: 20111025
  29. LEXAPRO [Concomitant]
     Active Substance: ESCITALOPRAM OXALATE
     Dates: start: 20110112
  30. CLONAZEPAM. [Concomitant]
     Active Substance: CLONAZEPAM
     Dates: start: 20110112

REACTIONS (7)
  - Multiple fractures [Unknown]
  - Chronic obstructive pulmonary disease [Unknown]
  - Bone density decreased [Unknown]
  - Diabetes mellitus [Unknown]
  - Osteoporosis [Unknown]
  - Wrist fracture [Unknown]
  - Bone loss [Unknown]

NARRATIVE: CASE EVENT DATE: 2010
